FAERS Safety Report 9203221 (Version 1)
Quarter: 2013Q1

REPORT INFORMATION
  Report Type: Spontaneous
  Country: US (occurrence: None)
  Receive Date: 20120709
  Receipt Date: 20120709
  Transmission Date: 20140127
  Serious: Yes (Other)
  Sender: FDA-Public Use
  Company Number: PHEH2011US01445

PATIENT
  Age: 75 Year
  Sex: Male

DRUGS (9)
  1. GLEEVEC (IMATINIB) UNKNOWN [Suspect]
  2. ATENOLOL [Suspect]
  3. ALEVE (NAPORXEN SODIUM) [Concomitant]
  4. CELEBREX (CELECOXIB) [Concomitant]
  5. BENADRYL (AMMONIUM CHLORIDE, DIPHENHYDRAMINE HYDROCHLORIDE,  MENTHOL, SODIUM CITRATE) [Concomitant]
  6. PHOSPHATIDYL SERINE (PHOSPHATIDYL SERINE) [Concomitant]
  7. CELADRIN [Concomitant]
  8. CLARITON [Concomitant]
  9. CLARINEX (LORATDINE, PSEUDOPHENDRINE SULFATE) [Concomitant]

REACTIONS (4)
  - Depression [None]
  - Arrhythmia [None]
  - Seasonal allergy [None]
  - Malaise [None]
